FAERS Safety Report 14394562 (Version 1)
Quarter: 2018Q1

REPORT INFORMATION
  Report Type: Spontaneous
  Country: US (occurrence: US)
  Receive Date: 20180116
  Receipt Date: 20180116
  Transmission Date: 20180509
  Serious: No
  Sender: FDA-Public Use
  Company Number: US-MERZ NORTH AMERICA, INC.-18MRZ-00035

PATIENT
  Age: 45 Year
  Sex: Female

DRUGS (1)
  1. XEOMIN [Suspect]
     Active Substance: INCOBOTULINUMTOXINA
     Indication: SKIN COSMETIC PROCEDURE
     Dosage: 28 UNITS TO FOREHEAD AND AROUND THE EYES
     Dates: start: 20180104, end: 20180104

REACTIONS (4)
  - Dysstasia [Unknown]
  - Ill-defined disorder [Unknown]
  - Facial paresis [Unknown]
  - Muscular weakness [Unknown]

NARRATIVE: CASE EVENT DATE: 20180108
